FAERS Safety Report 7731465-5 (Version None)
Quarter: 2011Q3

REPORT INFORMATION
  Report Type: 
  Country: None (occurrence: None)
  Receive Date: 20110906
  Receipt Date: 20110822
  Transmission Date: 20111222
  Serious: Yes (Other)
  Sender: FDA-Public Use
  Company Number: GB-ARROW GEN-2011-13405

PATIENT
  Age: 54 Year
  Sex: Female

DRUGS (5)
  1. BLACK COHOSH                       /01456805/ [Concomitant]
     Indication: PRODUCT USED FOR UNKNOWN INDICATION
     Dosage: UNK
     Route: 048
  2. ZOPICLONE [Concomitant]
     Indication: INSOMNIA
     Dosage: 3.75 MG, UNKNOWN
     Route: 048
     Dates: start: 20110617
  3. CLONIDINE [Concomitant]
     Indication: HOT FLUSH
     Dosage: 50 MCG, BID
     Route: 048
     Dates: start: 20110412, end: 20110727
  4. VITAMIN B COMPLEX                  /00003501/ [Concomitant]
     Indication: PRODUCT USED FOR UNKNOWN INDICATION
     Dosage: UNK
     Route: 048
  5. CITALOPRAM HYDROBROMIDE [Suspect]
     Indication: HOT FLUSH
     Dosage: 10 MG, UNKNOWN
     Route: 048
     Dates: start: 20110728, end: 20110730

REACTIONS (4)
  - PALPITATIONS [None]
  - AGITATION [None]
  - SEROTONIN SYNDROME [None]
  - PARANOIA [None]
